FAERS Safety Report 13641885 (Version 2)
Quarter: 2017Q3

REPORT INFORMATION
  Report Type: Spontaneous
  Country: US (occurrence: US)
  Receive Date: 20170612
  Receipt Date: 20170711
  Transmission Date: 20171127
  Serious: No
  Sender: FDA-Public Use
  Company Number: US-PFIZER INC-2017205435

PATIENT
  Age: 16 Year
  Sex: Male
  Weight: 53.25 kg

DRUGS (4)
  1. GENOTROPIN [Suspect]
     Active Substance: SOMATROPIN
     Indication: GROWTH HORMONE DEFICIENCY
     Dosage: 4.2 MG, (6 DAYS WEEKLY)
     Route: 058
     Dates: start: 201103
  2. BENZOYL PEROXIDE. [Concomitant]
     Active Substance: BENZOYL PEROXIDE
     Indication: ACNE
  3. CLEOCIN-T [Concomitant]
     Dosage: 1 DF, AS NEEDED
     Route: 061
  4. GENOTROPIN [Suspect]
     Active Substance: SOMATROPIN
     Indication: GROWTH RETARDATION

REACTIONS (7)
  - Cough [Unknown]
  - Sinus congestion [Unknown]
  - Eye disorder [Unknown]
  - Eye discharge [Unknown]
  - Malaise [Unknown]
  - Nasopharyngitis [Unknown]
  - Lacrimation increased [Unknown]
